FAERS Safety Report 25578418 (Version 1)
Quarter: 2025Q3

REPORT INFORMATION
  Report Type: Spontaneous
  Country: JP (occurrence: JP)
  Receive Date: 20250718
  Receipt Date: 20250718
  Transmission Date: 20251020
  Serious: Yes (Other)
  Sender: SANDOZ
  Company Number: JP-asahikaseip-2025-AER-04376

PATIENT
  Age: 86 Year
  Sex: Male

DRUGS (1)
  1. RECLAST [Suspect]
     Active Substance: ZOLEDRONIC ACID
     Indication: Osteoporosis
     Route: 041

REACTIONS (1)
  - Osteonecrosis of jaw [Unknown]
